FAERS Safety Report 14905060 (Version 1)
Quarter: 2018Q2

REPORT INFORMATION
  Report Type: Spontaneous
  Country: US (occurrence: US)
  Receive Date: 20180517
  Receipt Date: 20180517
  Transmission Date: 20180711
  Serious: No
  Sender: FDA-Public Use
  Company Number: US-SA-2017SA177093

PATIENT
  Sex: Male

DRUGS (2)
  1. NOVOLOG [Concomitant]
     Active Substance: INSULIN ASPART
  2. LANTUS [Suspect]
     Active Substance: INSULIN GLARGINE
     Indication: TYPE 1 DIABETES MELLITUS
     Dosage: HIS DOSE IS 12-14 UNITS IN THE MORNING, THEN 12-14 UNITS TWELVE HOURS LATER
     Route: 051
     Dates: start: 2004

REACTIONS (3)
  - Blood glucose abnormal [Unknown]
  - Product use issue [Unknown]
  - Drug ineffective [Unknown]
